FAERS Safety Report 6894153-3 (Version None)
Quarter: 2010Q3

REPORT INFORMATION
  Report Type: 
  Country: None (occurrence: None)
  Receive Date: 20100802
  Receipt Date: 20100721
  Transmission Date: 20110219
  Serious: Yes (Hospitalization)
  Sender: FDA-Public Use
  Company Number: US-JNJFOC-20060806785

PATIENT
  Sex: Female
  Weight: 66.7 kg

DRUGS (7)
  1. GOLIMUMAB [Suspect]
     Indication: RHEUMATOID ARTHRITIS
     Route: 058
  2. GOLIMUMAB [Suspect]
     Route: 058
  3. GOLIMUMAB [Suspect]
     Route: 058
  4. ATENOL [Concomitant]
     Route: 048
  5. XANAX [Concomitant]
     Route: 048
  6. LUNESTA [Concomitant]
     Route: 048
  7. DARVOCET [Concomitant]
     Route: 048

REACTIONS (17)
  - ATRIAL FIBRILLATION [None]
  - BLOOD CREATINE PHOSPHOKINASE INCREASED [None]
  - BLOOD GLUCOSE INCREASED [None]
  - BLOOD SODIUM DECREASED [None]
  - CHEMICAL INJURY [None]
  - COLON ADENOMA [None]
  - COLONIC POLYP [None]
  - EJECTION FRACTION DECREASED [None]
  - GASTRIC MUCOSAL HYPERTROPHY [None]
  - GASTRITIS [None]
  - HAEMATOCRIT DECREASED [None]
  - HAEMOGLOBIN DECREASED [None]
  - HEPATIC ADENOMA [None]
  - LYMPHOMA [None]
  - NEUTROPHIL COUNT INCREASED [None]
  - PNEUMOTHORAX [None]
  - RECTAL POLYP [None]
